FAERS Safety Report 23623768 (Version 1)
Quarter: 2024Q1

REPORT INFORMATION
  Report Type: Spontaneous
  Country: US (occurrence: US)
  Receive Date: 20240312
  Receipt Date: 20240312
  Transmission Date: 20240410
  Serious: No
  Sender: FDA-Public Use
  Company Number: US-ABBVIE-5674419

PATIENT
  Age: 22 Year
  Sex: Female

DRUGS (1)
  1. LILETTA [Suspect]
     Active Substance: LEVONORGESTREL
     Indication: Product used for unknown indication
     Dosage: TIME INTERVAL: AS NECESSARY
     Route: 015
     Dates: start: 20230824, end: 20240219

REACTIONS (3)
  - Device dislocation [Unknown]
  - Intra-uterine contraceptive device removal [Unknown]
  - Pelvic pain [Unknown]

NARRATIVE: CASE EVENT DATE: 20240219
